FAERS Safety Report 9309305 (Version 1)
Quarter: 2013Q2

REPORT INFORMATION
  Report Type: Spontaneous
  Country: US (occurrence: US)
  Receive Date: 20130525
  Receipt Date: 20130525
  Transmission Date: 20140414
  Serious: No
  Sender: FDA-Public Use
  Company Number: US-BRISTOL-MYERS SQUIBB COMPANY-18581553

PATIENT
  Sex: Male

DRUGS (3)
  1. BYDUREON 2MG VIAL + SYRINGE [Suspect]
     Route: 058
  2. PEPTO-BISMOL [Concomitant]
     Indication: ABDOMINAL PAIN UPPER
  3. ZANTAC [Concomitant]
     Indication: ABDOMINAL PAIN UPPER

REACTIONS (5)
  - Malaise [Not Recovered/Not Resolved]
  - Weight decreased [Unknown]
  - Abdominal pain upper [Not Recovered/Not Resolved]
  - Decreased appetite [Unknown]
  - Eructation [Not Recovered/Not Resolved]
